FAERS Safety Report 10862032 (Version 1)
Quarter: 2015Q1

REPORT INFORMATION
  Report Type: Report from Study
  Country: CA (occurrence: CA)
  Receive Date: 20150224
  Receipt Date: 20150224
  Transmission Date: 20150721
  Serious: Yes (Other)
  Sender: FDA-Public Use
  Company Number: PHHY2013CA125305

PATIENT
  Age: 65 Year
  Sex: Female

DRUGS (3)
  1. LIPITOR [Concomitant]
     Active Substance: ATORVASTATIN CALCIUM
     Indication: PRODUCT USED FOR UNKNOWN INDICATION
     Route: 065
  2. GLEEVEC [Suspect]
     Active Substance: IMATINIB MESYLATE
     Indication: CHRONIC MYELOID LEUKAEMIA
     Dosage: 400 MG, QD
     Route: 048
     Dates: start: 20131023, end: 201501
  3. SYNTHROID [Concomitant]
     Active Substance: LEVOTHYROXINE SODIUM
     Indication: PRODUCT USED FOR UNKNOWN INDICATION
     Route: 065

REACTIONS (22)
  - Ear discomfort [Unknown]
  - Constipation [Unknown]
  - Peripheral swelling [Recovering/Resolving]
  - Cyst [Unknown]
  - Blood phosphorus decreased [Unknown]
  - Urethral perforation [Unknown]
  - Mass [Unknown]
  - Rash [Recovering/Resolving]
  - Fatigue [Unknown]
  - Nausea [Recovering/Resolving]
  - Scab [Unknown]
  - Diarrhoea [Unknown]
  - Dry eye [Unknown]
  - Cough [Unknown]
  - Nasopharyngitis [Unknown]
  - Neck pain [Unknown]
  - Acne [Unknown]
  - Dysphonia [Not Recovered/Not Resolved]
  - Vomiting [Recovered/Resolved]
  - Dry skin [Unknown]
  - Periorbital oedema [Not Recovered/Not Resolved]
  - Abdominal pain upper [Unknown]

NARRATIVE: CASE EVENT DATE: 201403
